FAERS Safety Report 21917175 (Version 1)
Quarter: 2023Q1

REPORT INFORMATION
  Report Type: Spontaneous
  Country: GB (occurrence: GB)
  Receive Date: 20230126
  Receipt Date: 20230126
  Transmission Date: 20230417
  Serious: Yes (Other)
  Sender: FDA-Public Use
  Company Number: GB-ANIPHARMA-2023-UK-000014

PATIENT
  Age: 65 Year
  Sex: Male
  Weight: 57 kg

DRUGS (12)
  1. CANDESARTAN [Suspect]
     Active Substance: CANDESARTAN
     Indication: Product used for unknown indication
     Dosage: DOSE TEXT: 4 EVERY DAY
     Route: 048
     Dates: start: 20230115, end: 20230118
  2. OLODATEROL HYDROCHLORIDE\TIOTROPIUM BROMIDE MONOHYDRATE [Concomitant]
     Active Substance: OLODATEROL HYDROCHLORIDE\TIOTROPIUM BROMIDE MONOHYDRATE
     Dosage: DOSE TEXT: 2 EVERY DAY
     Route: 055
     Dates: start: 20220406, end: 20221207
  3. TOPIRAMATE [Concomitant]
     Active Substance: TOPIRAMATE
     Dosage: DOSE TEXT: 2 TWO TIMES A DAY
     Route: 065
     Dates: start: 20220909, end: 20221207
  4. TRAMADOL HYDROCHLORIDE [Concomitant]
     Active Substance: TRAMADOL HYDROCHLORIDE
     Dosage: DOSE TEXT: 1
     Route: 065
     Dates: start: 20220406
  5. AMOXICILLIN [Concomitant]
     Active Substance: AMOXICILLIN
     Dosage: DOSE TEXT: 1 THREE TIMES A DAY
     Route: 065
     Dates: start: 20230106, end: 20230113
  6. BACLOFEN [Concomitant]
     Active Substance: BACLOFEN
     Dosage: DOSE TEXT: 1 EIGHT TIMES A DAY USE FOR UPTITRATION OF REGULAR DOSE (NEVER MORE...
     Route: 065
     Dates: start: 20220406, end: 20221207
  7. CITALOPRAM [Concomitant]
     Active Substance: CITALOPRAM HYDROBROMIDE
     Dosage: DOSE TEXT: 1
     Route: 065
     Dates: start: 20220406, end: 20221207
  8. CLOPIDOGREL [Concomitant]
     Active Substance: CLOPIDOGREL BISULFATE
     Dosage: DOSE TEXT: 1 EVERY DAY
     Route: 065
     Dates: start: 20220406
  9. GABAPENTIN [Concomitant]
     Active Substance: GABAPENTIN
     Dosage: DOSE TEXT: 2 THREE TIMES A DAY
     Route: 065
     Dates: start: 20220406
  10. LANSOPRAZOLE [Concomitant]
     Active Substance: LANSOPRAZOLE
     Dosage: DOSE TEXT: TAKE ONE OR TWO  EVERY DAY
     Route: 065
     Dates: start: 20220406
  11. ACETAMINOPHEN [Concomitant]
     Active Substance: ACETAMINOPHEN
     Dosage: DOSE TEXT: 2 FOUR TIMES A DAY
     Route: 065
     Dates: start: 20220406
  12. SIMVASTATIN [Concomitant]
     Active Substance: SIMVASTATIN
     Dosage: DOSE TEXT: 1 AT NIGHT
     Route: 065
     Dates: start: 20220406, end: 20221207

REACTIONS (1)
  - Palpitations [Unknown]
